FAERS Safety Report 14741877 (Version 1)
Quarter: 2018Q2

REPORT INFORMATION
  Report Type: Spontaneous
  Country: US (occurrence: US)
  Receive Date: 20180404
  Receipt Date: 20180404
  Transmission Date: 20180711
  Serious: Yes (Disabling)
  Sender: FDA-Public Use
  Company Number: None

PATIENT
  Age: 81 Year
  Sex: Male
  Weight: 96.16 kg

DRUGS (8)
  1. ASPIRIN. [Suspect]
     Active Substance: ASPIRIN
  2. LEVOFLOXACIN 500MG TABLETS WALGREENS [Suspect]
     Active Substance: LEVOFLOXACIN
     Indication: PNEUMONIA
     Dosage: ?          QUANTITY:10 DF DOSAGE FORM;?
     Route: 048
     Dates: start: 20180301, end: 20180304
  3. CENTRUM VITAMIN [Concomitant]
  4. ENALAPRIL [Concomitant]
     Active Substance: ENALAPRIL
  5. ALLOPURINOL. [Concomitant]
     Active Substance: ALLOPURINOL
  6. CARVEDILOL. [Concomitant]
     Active Substance: CARVEDILOL
  7. PACEMAKER [Concomitant]
  8. ATORVASTATIN [Concomitant]
     Active Substance: ATORVASTATIN

REACTIONS (3)
  - Tendon pain [None]
  - Blood pressure increased [None]
  - Muscle spasms [None]

NARRATIVE: CASE EVENT DATE: 20180303
